FAERS Safety Report 11030261 (Version 1)
Quarter: 2015Q2

REPORT INFORMATION
  Report Type: Spontaneous
  Country: JP (occurrence: JP)
  Receive Date: 20150415
  Receipt Date: 20150415
  Transmission Date: 20150821
  Serious: Yes (Other)
  Sender: FDA-Public Use
  Company Number: JP-ELI_LILLY_AND_COMPANY-JP201504004103

PATIENT
  Age: 67 Year
  Sex: Female

DRUGS (11)
  1. LANSOPRAZOLE. [Concomitant]
     Active Substance: LANSOPRAZOLE
  2. BAYASPIRIN [Concomitant]
     Active Substance: ASPIRIN
  3. MYSLEE [Concomitant]
     Active Substance: ZOLPIDEM TARTRATE
  4. ZYPREXA [Suspect]
     Active Substance: OLANZAPINE
     Indication: DEPRESSION
     Route: 048
  5. BELSOMRA [Concomitant]
     Active Substance: SUVOREXANT
  6. FLUVASTATIN SODIUM. [Concomitant]
     Active Substance: FLUVASTATIN SODIUM
  7. AMOXAN [Concomitant]
     Active Substance: AMOXAPINE
  8. TOLEDOMIN [Concomitant]
     Active Substance: MILNACIPRAN HYDROCHLORIDE
  9. BOFUTSUSHOSAN [Concomitant]
  10. JANUVIA [Concomitant]
     Active Substance: SITAGLIPTIN PHOSPHATE
  11. SOLANAX [Concomitant]
     Active Substance: ALPRAZOLAM

REACTIONS (5)
  - Off label use [Recovered/Resolved]
  - Blood glucose decreased [Unknown]
  - Loss of consciousness [Unknown]
  - Weight increased [Unknown]
  - Blood glucose increased [Unknown]
